FAERS Safety Report 8875887 (Version 1)
Quarter: 2012Q4

REPORT INFORMATION
  Report Type: 
  Country: US (occurrence: US)
  Receive Date: 20121023
  Receipt Date: 20121023
  Transmission Date: 20130627
  Serious: Yes (Hospitalization)
  Sender: FDA-Public Use
  Company Number: US-ELI_LILLY_AND_COMPANY-US201210004800

PATIENT
  Age: 69 Year
  Sex: Female
  Weight: 45.35 kg

DRUGS (1)
  1. FORTEO [Suspect]
     Dosage: UNK, qd
     Route: 058
     Dates: start: 201205

REACTIONS (6)
  - Confusional state [Not Recovered/Not Resolved]
  - Pneumonia [Not Recovered/Not Resolved]
  - Illusion [Not Recovered/Not Resolved]
  - Delusion [Not Recovered/Not Resolved]
  - Decreased appetite [Unknown]
  - Weight decreased [Unknown]
